FAERS Safety Report 24237297 (Version 1)
Quarter: 2024Q3

REPORT INFORMATION
  Report Type: Spontaneous
  Country: US (occurrence: US)
  Receive Date: 20240822
  Receipt Date: 20240822
  Transmission Date: 20241016
  Serious: Yes (Other)
  Sender: TEVA
  Company Number: US-TEVA-VS-3233759

PATIENT
  Age: 49 Year
  Sex: Female

DRUGS (2)
  1. GABAPENTIN [Suspect]
     Active Substance: GABAPENTIN
     Indication: Fibromyalgia
     Dosage: 500MG A DAY, 100MG AT 3 SEPARATE TIMES DURING THE DAY AND 2 CAPSULES (200MG) AT NIGHT
     Route: 065
     Dates: start: 2005
  2. GABAPENTIN [Suspect]
     Active Substance: GABAPENTIN
     Indication: Fibromyalgia
     Dosage: TIME INTERVAL: 0.33333333 DAYS: 100MG THREE SEPARATE TIMES DURING THE DAY
     Route: 065

REACTIONS (3)
  - Mast cell activation syndrome [Unknown]
  - Off label use [Unknown]
  - Product availability issue [Unknown]

NARRATIVE: CASE EVENT DATE: 20050101
